FAERS Safety Report 19011094 (Version 1)
Quarter: 2021Q1

REPORT INFORMATION
  Report Type: Spontaneous
  Country: US (occurrence: US)
  Receive Date: 20210315
  Receipt Date: 20210315
  Transmission Date: 20210420
  Serious: No
  Sender: FDA-Public Use
  Company Number: None

PATIENT
  Age: 12 Year
  Sex: Male

DRUGS (1)
  1. NORDITROPIN [Suspect]
     Active Substance: SOMATROPIN
     Indication: HYPOPITUITARISM
     Route: 058
     Dates: start: 20210128

REACTIONS (7)
  - Nocturia [None]
  - Decreased appetite [None]
  - Abnormal faeces [None]
  - Headache [None]
  - Rhinorrhoea [None]
  - Periorbital swelling [None]
  - Diarrhoea [None]

NARRATIVE: CASE EVENT DATE: 202101
